FAERS Safety Report 12786790 (Version 1)
Quarter: 2016Q3

REPORT INFORMATION
  Report Type: Spontaneous
  Country: FR (occurrence: FR)
  Receive Date: 20160927
  Receipt Date: 20160927
  Transmission Date: 20161109
  Serious: Yes (Hospitalization, Other)
  Sender: FDA-Public Use
  Company Number: FR-ASTRAZENECA-2016SF00601

PATIENT
  Age: 28539 Day
  Sex: Female
  Weight: 74 kg

DRUGS (11)
  1. LOXEN [Concomitant]
     Active Substance: NICARDIPINE HYDROCHLORIDE
  2. TIORFAN [Concomitant]
     Active Substance: RACECADOTRIL
  3. INEXIUM [Suspect]
     Active Substance: ESOMEPRAZOLE
     Route: 048
  4. ZELITREX [Concomitant]
     Active Substance: VALACYCLOVIR HYDROCHLORIDE
  5. COVERAM [Concomitant]
     Active Substance: AMLODIPINE\PERINDOPRIL
     Indication: HYPERTENSION
  6. FLUDEX [Concomitant]
     Active Substance: INDAPAMIDE
     Indication: HYPERTENSION
  7. NOXAFIL [Concomitant]
     Active Substance: POSACONAZOLE
  8. PERFALGAN [Concomitant]
     Active Substance: ACETAMINOPHEN
  9. DEXAMETHASONE. [Concomitant]
     Active Substance: DEXAMETHASONE
     Dates: end: 20160606
  10. PRIMPERAN [Concomitant]
     Active Substance: METOCLOPRAMIDE HYDROCHLORIDE
  11. BLINATUMOMAB [Concomitant]
     Active Substance: BLINATUMOMAB

REACTIONS (20)
  - Hypertension [Unknown]
  - Somnolence [Unknown]
  - Acute kidney injury [Unknown]
  - Meningoencephalitis herpetic [Unknown]
  - Pyrexia [Unknown]
  - Presyncope [Unknown]
  - Disorientation [Unknown]
  - Acute lymphocytic leukaemia recurrent [Unknown]
  - Aphasia [Unknown]
  - Dysarthria [Unknown]
  - Hypomagnesaemia [Not Recovered/Not Resolved]
  - Hypokinesia [Unknown]
  - Agitation [Unknown]
  - Tremor [Unknown]
  - Psychomotor skills impaired [Unknown]
  - Urinary retention [Unknown]
  - Blood alkaline phosphatase increased [Unknown]
  - Blood bilirubin increased [Unknown]
  - Transaminases increased [Unknown]
  - Tumour lysis syndrome [Unknown]

NARRATIVE: CASE EVENT DATE: 20160618
